FAERS Safety Report 18320775 (Version 2)
Quarter: 2020Q4

REPORT INFORMATION
  Report Type: Spontaneous
  Country: US (occurrence: US)
  Receive Date: 20200928
  Receipt Date: 20201023
  Transmission Date: 20210113
  Serious: No
  Sender: FDA-Public Use
  Company Number: US-ASTRAZENECA-2020SF13193

PATIENT
  Age: 55 Year
  Sex: Female

DRUGS (1)
  1. RHINOCORT ALLERGY [Suspect]
     Active Substance: BUDESONIDE
     Indication: ASTHMA
     Dosage: START DATE: 10 YEARS AGO; LAST ADMIN DATE: 14-SEPT-2020
     Route: 065

REACTIONS (1)
  - Product use in unapproved indication [Unknown]
